FAERS Safety Report 8816124 (Version 2)
Quarter: 2012Q4

REPORT INFORMATION
  Report Type: 
  Country: JP (occurrence: JP)
  Receive Date: 20120929
  Receipt Date: 20121217
  Transmission Date: 20130627
  Serious: Yes (Other)
  Sender: FDA-Public Use
  Company Number: JP-009507513-1209JPN009253

PATIENT
  Age: 69 Year
  Sex: Female
  Weight: 59 kg

DRUGS (12)
  1. PEGINTRON [Suspect]
     Indication: CHRONIC HEPATITIS C
     Dosage: 1.5 Microgram per kilogram, qw
     Route: 058
     Dates: start: 20120523, end: 20121108
  2. REBETOL [Suspect]
     Indication: CHRONIC HEPATITIS C
     Dosage: 600 mg, qd
     Route: 048
     Dates: start: 20120523, end: 20120711
  3. REBETOL [Suspect]
     Dosage: 400 mg, qd
     Route: 048
     Dates: start: 20120712, end: 20120725
  4. REBETOL [Suspect]
     Dosage: 200 mg, qd
     Route: 048
     Dates: start: 20120726, end: 20120802
  5. REBETOL [Suspect]
     Dosage: 200 mg, qd
     Route: 048
     Dates: start: 20120913, end: 20120926
  6. REBETOL [Suspect]
     Dosage: 400 mg, qd
     Route: 048
     Dates: start: 20120927, end: 20121011
  7. REBETOL [Suspect]
     Dosage: 600 mg, qd
     Route: 048
     Dates: start: 20121012, end: 20121108
  8. TELAVIC [Suspect]
     Indication: CHRONIC HEPATITIS C
     Dosage: 2250 mg, qd
     Route: 048
     Dates: start: 20120523, end: 20120610
  9. TELAVIC [Suspect]
     Dosage: 1500 mg, qd
     Route: 048
     Dates: start: 20120611, end: 20120816
  10. CONIEL [Concomitant]
     Indication: HYPERTENSION
     Dosage: 4 mg, qd, Formulation:POR
     Route: 048
  11. BLOPRESS [Concomitant]
     Indication: HYPERTENSION
     Dosage: 2 mg, qd, Formulation:POR
     Route: 048
  12. DEPAS [Concomitant]
     Dosage: 1 mg, qd
     Route: 048

REACTIONS (1)
  - Anaemia [Recovering/Resolving]
